FAERS Safety Report 11639662 (Version 1)
Quarter: 2015Q4

REPORT INFORMATION
  Report Type: Spontaneous
  Country: US (occurrence: US)
  Receive Date: 20151019
  Receipt Date: 20151019
  Transmission Date: 20160304
  Serious: No
  Sender: FDA-Public Use
  Company Number: US-009507513-1510USA005232

PATIENT
  Sex: Female

DRUGS (1)
  1. TICE BCG [Suspect]
     Active Substance: BACILLUS CALMETTE-GUERIN SUBSTRAIN TICE LIVE ANTIGEN
     Indication: PROPHYLAXIS
     Dosage: UNK
     Route: 067
     Dates: start: 20151008

REACTIONS (2)
  - Drug administered at inappropriate site [Unknown]
  - No adverse event [Unknown]

NARRATIVE: CASE EVENT DATE: 20151008
